FAERS Safety Report 24156012 (Version 3)
Quarter: 2024Q3

REPORT INFORMATION
  Report Type: Spontaneous
  Country: GB (occurrence: GB)
  Receive Date: 20240731
  Receipt Date: 20240905
  Transmission Date: 20241017
  Serious: Yes (Other)
  Sender: MYLAN
  Company Number: GB-MYLANLABS-2024M1070371

PATIENT
  Sex: Male

DRUGS (2)
  1. CLOZARIL [Suspect]
     Active Substance: CLOZAPINE
     Indication: Schizophrenia
     Dosage: UNK
     Route: 048
     Dates: start: 20240702
  2. CLOZARIL [Suspect]
     Active Substance: CLOZAPINE
     Dosage: UNK (START DATE: UNKNOWN DATE IN 2024)
     Route: 048

REACTIONS (4)
  - Mental impairment [Unknown]
  - Eosinophil count decreased [Recovered/Resolved]
  - Haemoglobin decreased [Unknown]
  - Treatment noncompliance [Unknown]

NARRATIVE: CASE EVENT DATE: 20240827
